FAERS Safety Report 9137082 (Version 1)
Quarter: 2013Q1

REPORT INFORMATION
  Report Type: Spontaneous
  Country: US (occurrence: US)
  Receive Date: 20130219
  Receipt Date: 20130219
  Transmission Date: 20140127
  Serious: No
  Sender: FDA-Public Use
  Company Number: US-BRISTOL-MYERS SQUIBB COMPANY-16794729

PATIENT
  Age: 34 Year
  Sex: Male
  Weight: 80.72 kg

DRUGS (7)
  1. ORENCIA FOR INJ [Suspect]
     Indication: RHEUMATOID ARTHRITIS
     Dosage: LAST DATE OF INJECTION:  23JUL2012 1DF= 125MG/ML
     Route: 058
  2. PREDNISONE [Concomitant]
     Dosage: TAB
  3. PERCOCET TABS 10 MG/325 MG [Concomitant]
  4. METHOTREXATE TABS [Concomitant]
  5. FOLIC ACID [Concomitant]
     Dosage: CAPS
  6. FISH OIL [Concomitant]
     Dosage: CAPS
  7. CENTRUM [Concomitant]
     Dosage: TAB

REACTIONS (1)
  - Rheumatoid arthritis [Not Recovered/Not Resolved]
